FAERS Safety Report 25984462 (Version 1)
Quarter: 2025Q4

REPORT INFORMATION
  Report Type: Spontaneous
  Country: CA (occurrence: CA)
  Receive Date: 20251031
  Receipt Date: 20251031
  Transmission Date: 20260118
  Serious: Yes (Hospitalization, Other)
  Sender: ORGANON
  Company Number: CA-ORGANON-O2510CAN002405

PATIENT
  Age: 57 Year
  Sex: Male

DRUGS (12)
  1. REMERON [Suspect]
     Active Substance: MIRTAZAPINE
     Indication: Back pain
     Dosage: 30 MILLIGRAM, QD
     Route: 065
  2. ARIPIPRAZOLE [Suspect]
     Active Substance: ARIPIPRAZOLE
     Indication: Back pain
     Dosage: 10 MILLIGRAM, QD
  3. BUPRENORPHINE [Suspect]
     Active Substance: BUPRENORPHINE
     Indication: Drug use disorder
     Dosage: UNK
     Route: 065
  4. BUPRENORPHINE [Suspect]
     Active Substance: BUPRENORPHINE
     Indication: Back pain
  5. CITALOPRAM HYDROBROMIDE [Suspect]
     Active Substance: CITALOPRAM HYDROBROMIDE
     Indication: Back pain
     Dosage: 40 MILLIGRAM, QD
     Route: 065
  6. DULOXETINE HYDROCHLORIDE [Suspect]
     Active Substance: DULOXETINE HYDROCHLORIDE
     Indication: Back pain
     Dosage: 120 MILLIGRAM, QD
     Route: 065
  7. NARCAN [Suspect]
     Active Substance: NALOXONE HYDROCHLORIDE
     Indication: Back pain
     Dosage: UNK
     Route: 065
  8. NARCAN [Suspect]
     Active Substance: NALOXONE HYDROCHLORIDE
     Indication: Drug use disorder
  9. NARCAN [Suspect]
     Active Substance: NALOXONE HYDROCHLORIDE
     Indication: Back pain
     Dosage: UNK
     Route: 065
  10. NARCAN [Suspect]
     Active Substance: NALOXONE HYDROCHLORIDE
     Indication: Drug use disorder
  11. QUETIAPINE [Suspect]
     Active Substance: QUETIAPINE
     Indication: Back pain
     Dosage: 400 MILLIGRAM, QD
     Route: 065
  12. ZOPICLONE [Suspect]
     Active Substance: ZOPICLONE
     Indication: Back pain
     Dosage: 7.5 MILLIGRAM, QD
     Route: 065

REACTIONS (5)
  - Cognitive disorder [Recovering/Resolving]
  - Dementia [Recovering/Resolving]
  - Neurodegenerative disorder [Recovering/Resolving]
  - Substance dependence [Recovering/Resolving]
  - Off label use [Recovering/Resolving]
